FAERS Safety Report 24365768 (Version 1)
Quarter: 2024Q3

REPORT INFORMATION
  Report Type: Spontaneous
  Country: BD (occurrence: BD)
  Receive Date: 20240926
  Receipt Date: 20240926
  Transmission Date: 20241016
  Serious: Yes (Other)
  Sender: ROCHE
  Company Number: BD-ROCHE-10000085500

PATIENT
  Age: 52 Year
  Sex: Female
  Weight: 80 kg

DRUGS (12)
  1. BEVACIZUMAB [Suspect]
     Active Substance: BEVACIZUMAB
     Indication: Colon cancer
     Route: 065
     Dates: start: 2019
  2. PHENIRAMINE [Concomitant]
     Active Substance: PHENIRAMINE
     Route: 048
  3. SONEXA [Concomitant]
     Route: 048
  4. esonix [Concomitant]
     Route: 048
  5. RIVOTRIL [Concomitant]
     Active Substance: CLONAZEPAM
     Route: 065
  6. FULPHILA [Concomitant]
     Active Substance: PEGFILGRASTIM-JMDB
     Route: 058
  7. emestop [Concomitant]
     Route: 048
  8. NAPA [Concomitant]
     Active Substance: ACETAMINOPHEN
     Route: 048
  9. VOLTAREN [Concomitant]
     Active Substance: DICLOFENAC SODIUM
     Route: 054
  10. digecid [Concomitant]
     Indication: Dyspepsia
     Route: 048
  11. IMOTIL [Concomitant]
     Route: 048
  12. neofloxin [Concomitant]
     Route: 048

REACTIONS (1)
  - Breast cancer metastatic [Unknown]
